FAERS Safety Report 16926780 (Version 1)
Quarter: 2019Q4

REPORT INFORMATION
  Report Type: Spontaneous
  Country: US (occurrence: US)
  Receive Date: 20191016
  Receipt Date: 20191016
  Transmission Date: 20200122
  Serious: No
  Sender: FDA-Public Use
  Company Number: US-SA-2019SA286583

PATIENT
  Sex: Female

DRUGS (1)
  1. AMBIEN CR [Suspect]
     Active Substance: ZOLPIDEM TARTRATE
     Dosage: 0.5 MG, PRN, BY MOUTH AS NEEDED FOR SLEEP
     Dates: start: 20190710

REACTIONS (3)
  - Weight decreased [Unknown]
  - Insomnia [Unknown]
  - Product availability issue [Unknown]
